FAERS Safety Report 11372028 (Version 1)
Quarter: 2015Q3

REPORT INFORMATION
  Report Type: Spontaneous
  Country: JP (occurrence: JP)
  Receive Date: 20150812
  Receipt Date: 20150812
  Transmission Date: 20151125
  Serious: Yes (Other)
  Sender: FDA-Public Use
  Company Number: JP-JNJFOC-20150806162

PATIENT
  Sex: Male

DRUGS (2)
  1. ALCOHOL. [Suspect]
     Active Substance: ALCOHOL
     Indication: PRODUCT USED FOR UNKNOWN INDICATION
     Route: 065
  2. TRAMCET [Suspect]
     Active Substance: ACETAMINOPHEN\TRAMADOL
     Indication: PAIN
     Dosage: 1 TABLET PER DOSE, TWICE TO THRICE DAILY, IN THE MORNING AND AT NIGHT.
     Route: 048

REACTIONS (4)
  - Headache [Unknown]
  - Treatment noncompliance [Unknown]
  - Hypoaesthesia [Unknown]
  - Loss of consciousness [Unknown]
